FAERS Safety Report 8175041-1 (Version None)
Quarter: 2012Q1

REPORT INFORMATION
  Report Type: 
  Country: None (occurrence: None)
  Receive Date: 20120229
  Receipt Date: 20120221
  Transmission Date: 20120608
  Serious: Yes (Other)
  Sender: FDA-Public Use
  Company Number: PHHY2012US015015

PATIENT

DRUGS (4)
  1. CYCLOPHOSPHAMIDE [Concomitant]
  2. FLUOROURACIL [Concomitant]
  3. METHOTREXATE [Concomitant]
  4. ALENDRONIC ACID [Suspect]
     Indication: OSTEOPOROSIS

REACTIONS (3)
  - OSTEOMA CUTIS [None]
  - PAPULE [None]
  - SKIN MASS [None]
